FAERS Safety Report 5891004-0 (Version None)
Quarter: 2008Q3

REPORT INFORMATION
  Report Type: 
  Country: None (occurrence: None)
  Receive Date: 20080922
  Receipt Date: 20080911
  Transmission Date: 20090109
  Serious: Yes (Hospitalization)
  Sender: FDA-Public Use
  Company Number: B0536708A

PATIENT
  Age: 84 Year
  Sex: Female

DRUGS (10)
  1. ACYCLOVIR [Suspect]
     Route: 048
     Dates: start: 20080702, end: 20080707
  2. WARFARIN SODIUM [Suspect]
  3. BEZAFIBRATE [Concomitant]
     Dosage: 400MG PER DAY
     Route: 048
  4. LANSOPRAZOLE [Concomitant]
     Dosage: 15MG PER DAY
     Route: 048
  5. BISOPROLOL FUMARATE [Concomitant]
     Dosage: 2.5MG PER DAY
  6. DILTIAZEM HCL [Concomitant]
     Dosage: 180MG PER DAY
     Route: 048
  7. CO-DYDRAMOL [Concomitant]
  8. NICORANDIL [Concomitant]
     Dosage: 20MG PER DAY
  9. MIXTARD HUMAN 70/30 [Concomitant]
  10. BUMETANIDE [Concomitant]
     Dosage: 3MG PER DAY

REACTIONS (2)
  - DRUG INTERACTION [None]
  - INTERNATIONAL NORMALISED RATIO INCREASED [None]
